FAERS Safety Report 8021238 (Version 4)
Quarter: 2014Q2

REPORT INFORMATION
  Report Type: Spontaneous
  Country: US (occurrence: US)
  Receive Date: 20110705
  Receipt Date: 20140512
  Transmission Date: 20141212
  Serious: Yes (Other)
  Sender: FDA-Public Use
  Company Number: US-ROCHE-786724

PATIENT
  Age: 35 Year
  Sex: Male
  Weight: 95.3 kg

DRUGS (2)
  1. ACCUTANE [Suspect]
     Indication: ACNE
     Route: 065
     Dates: start: 1988, end: 1989
  2. ACCUTANE [Suspect]
     Route: 065

REACTIONS (11)
  - Colitis ulcerative [Unknown]
  - Inflammatory bowel disease [Unknown]
  - Injury [Unknown]
  - Abdominal pain [Unknown]
  - Haematochezia [Unknown]
  - Gastrointestinal disorder [Unknown]
  - Rectal haemorrhage [Unknown]
  - Emotional distress [Unknown]
  - Depression [Unknown]
  - Morbid thoughts [Unknown]
  - Irritable bowel syndrome [Unknown]
